FAERS Safety Report 21257532 (Version 5)
Quarter: 2022Q4

REPORT INFORMATION
  Report Type: Spontaneous
  Country: US (occurrence: None)
  Receive Date: 20220826
  Receipt Date: 20221003
  Transmission Date: 20230112
  Serious: Yes (Other)
  Sender: FDA-Public Use
  Company Number: US-ROCHE-3166352

PATIENT
  Age: 27 Year
  Sex: Female
  Weight: 72.640 kg

DRUGS (7)
  1. ACTEMRA [Suspect]
     Active Substance: TOCILIZUMAB
     Indication: Rheumatoid arthritis
     Dosage: STRENGTH:162 MG/0/9 ML
     Route: 058
     Dates: start: 20190820, end: 20220819
  2. ACTEMRA [Suspect]
     Active Substance: TOCILIZUMAB
  3. ACTEMRA [Suspect]
     Active Substance: TOCILIZUMAB
     Dosage: STRENGTH:162 MG/0/9 ML
     Route: 058
  4. ACTEMRA [Suspect]
     Active Substance: TOCILIZUMAB
  5. ACTEMRA [Suspect]
     Active Substance: TOCILIZUMAB
     Dosage: STRENGTH:162 MG/0/9 ML?DOSAGE: EVERY FRIDAY
     Route: 058
  6. ACTEMRA [Suspect]
     Active Substance: TOCILIZUMAB
  7. MELOXICAM [Concomitant]
     Active Substance: MELOXICAM
     Indication: Rheumatoid arthritis
     Dates: start: 2021

REACTIONS (15)
  - Rheumatoid arthritis [Not Recovered/Not Resolved]
  - Fatigue [Recovering/Resolving]
  - Hyperhidrosis [Recovering/Resolving]
  - Chills [Recovering/Resolving]
  - Decreased appetite [Not Recovered/Not Resolved]
  - Road traffic accident [Unknown]
  - Cartilage injury [Recovered/Resolved]
  - Concussion [Recovered/Resolved]
  - Feeling abnormal [Recovered/Resolved]
  - Epistaxis [Recovered/Resolved]
  - Ill-defined disorder [Unknown]
  - Product dose omission issue [Unknown]
  - Dizziness [Unknown]
  - Nausea [Unknown]
  - Product complaint [Unknown]

NARRATIVE: CASE EVENT DATE: 20220819
